FAERS Safety Report 4478154-0 (Version None)
Quarter: 2004Q4

REPORT INFORMATION
  Report Type: 
  Country: None (occurrence: None)
  Receive Date: 20041014
  Receipt Date: 20040929
  Transmission Date: 20050328
  Serious: Yes (Hospitalization, Other)
  Sender: FDA-Public Use
  Company Number: 2004065304

PATIENT
  Age: 11 Year
  Sex: Male
  Weight: 31.7 kg

DRUGS (3)
  1. ZITHROMAX [Suspect]
     Indication: TRACHEOBRONCHITIS MYCOPLASMAL
     Dosage: 500 MG (1 D), ORAL
     Route: 048
     Dates: start: 20040819, end: 20040821
  2. UNASYN [Suspect]
     Indication: TRACHEOBRONCHITIS MYCOPLASMAL
     Dosage: 1.5 GRAM (0.5 GRAM, 3 IN 1 D) INTRAVENOUS
     Route: 042
     Dates: start: 20040819
  3. COUGH AND COLD PREPARATIONS (COUGH AND COLD PREPARATIONS) [Concomitant]

REACTIONS (3)
  - ALANINE AMINOTRANSFERASE INCREASED [None]
  - ASPARTATE AMINOTRANSFERASE INCREASED [None]
  - HEPATIC FUNCTION ABNORMAL [None]
